FAERS Safety Report 11205266 (Version 3)
Quarter: 2015Q3

REPORT INFORMATION
  Report Type: Spontaneous
  Country: RO (occurrence: RO)
  Receive Date: 20150622
  Receipt Date: 20150819
  Transmission Date: 20151125
  Serious: Yes (Disabling)
  Sender: FDA-Public Use
  Company Number: RO-ROCHE-1596493

PATIENT
  Age: 66 Year
  Sex: Female
  Weight: 60 kg

DRUGS (6)
  1. CALCIVID [Concomitant]
     Indication: HYPOCALCAEMIA
     Dosage: OCCASIONALLY
     Route: 048
     Dates: start: 2014
  2. RIBAVIRINUM [Suspect]
     Active Substance: RIBAVIRIN
     Indication: HEPATITIS C
     Route: 048
     Dates: start: 201409
  3. LAGOSA [Concomitant]
     Indication: HEPATITIS C
     Route: 048
     Dates: start: 2014
  4. PEGASYS [Suspect]
     Active Substance: PEGINTERFERON ALFA-2A
     Indication: HEPATITIS C
     Route: 058
     Dates: start: 201409, end: 201506
  5. DILTIAZEM [Concomitant]
     Active Substance: DILTIAZEM
     Indication: MYOCARDIAL ISCHAEMIA
     Route: 048
     Dates: start: 2014
  6. CRESTOR [Concomitant]
     Active Substance: ROSUVASTATIN CALCIUM
     Indication: HYPERCHOLESTEROLAEMIA
     Route: 048
     Dates: start: 2014

REACTIONS (3)
  - Autonomic neuropathy [Recovered/Resolved]
  - Syncope [Recovered/Resolved]
  - Orthostatic hypotension [Recovered/Resolved]

NARRATIVE: CASE EVENT DATE: 201503
